FAERS Safety Report 20348278 (Version 2)
Quarter: 2022Q2

REPORT INFORMATION
  Report Type: Spontaneous
  Country: FR (occurrence: FR)
  Receive Date: 20220119
  Receipt Date: 20220405
  Transmission Date: 20220720
  Serious: Yes (Other)
  Sender: FDA-Public Use
  Company Number: FR-BAYER-2022A006792

PATIENT
  Sex: Female

DRUGS (1)
  1. RIVAROXABAN [Suspect]
     Active Substance: RIVAROXABAN
     Indication: Arrhythmia
     Dosage: 20 MG, QD
     Route: 048

REACTIONS (7)
  - Haematochezia [Unknown]
  - Venous thrombosis limb [Unknown]
  - Gingival bleeding [Unknown]
  - Pruritus [Unknown]
  - Acne [Unknown]
  - Erythrocyanosis [Recovered/Resolved]
  - Peripheral venous disease [Unknown]

NARRATIVE: CASE EVENT DATE: 20170101
